FAERS Safety Report 4289853-8 (Version None)
Quarter: 2004Q1

REPORT INFORMATION
  Report Type: 
  Country: None (occurrence: None)
  Receive Date: 20040209
  Receipt Date: 20030618
  Transmission Date: 20041129
  Serious: Yes (Other)
  Sender: FDA-Public Use
  Company Number: US-GLAXOSMITHKLINE-A0412978A

PATIENT
  Age: 21 Year
  Sex: Female

DRUGS (3)
  1. PAXIL [Suspect]
     Indication: PANIC ATTACK
     Dosage: 30MG PER DAY
     Route: 048
     Dates: start: 20030301
  2. ORTHO TRI-CYCLEN [Concomitant]
  3. MULTIVITAMIN [Concomitant]

REACTIONS (4)
  - CONVULSION [None]
  - HYPOGLYCAEMIA [None]
  - INSOMNIA [None]
  - SOMNOLENCE [None]
